FAERS Safety Report 18939609 (Version 1)
Quarter: 2021Q1

REPORT INFORMATION
  Report Type: Spontaneous
  Country: CA (occurrence: CA)
  Receive Date: 20210224
  Receipt Date: 20210224
  Transmission Date: 20210420
  Serious: Yes (Other)
  Sender: FDA-Public Use
  Company Number: CA-PFIZER INC-2021138455

PATIENT
  Age: 58 Year
  Sex: Male

DRUGS (1)
  1. LORLATINIB [Suspect]
     Active Substance: LORLATINIB
     Dosage: UNK

REACTIONS (5)
  - Hypercholesterolaemia [Unknown]
  - Oedema peripheral [Unknown]
  - Electrocardiogram PR prolongation [Unknown]
  - Hypertriglyceridaemia [Unknown]
  - Electrocardiogram QT prolonged [Unknown]
